FAERS Safety Report 19577175 (Version 3)
Quarter: 2021Q3

REPORT INFORMATION
  Report Type: Spontaneous
  Country: NL (occurrence: NL)
  Receive Date: 20210719
  Receipt Date: 20210927
  Transmission Date: 20211014
  Serious: Yes (Hospitalization, Other)
  Sender: FDA-Public Use
  Company Number: NL-ELI_LILLY_AND_COMPANY-NL202107002595

PATIENT
  Age: 75 Year
  Sex: Male

DRUGS (8)
  1. NIFEDINE [Concomitant]
     Dosage: 30 MG, DAILY
  2. PREDNISOLON [PREDNISOLONE] [Concomitant]
     Active Substance: PREDNISOLONE
     Dosage: 10 MG, DAILY
  3. PYRIDOXINE [Concomitant]
     Active Substance: PYRIDOXINE
     Dosage: 20 MG, UNKNOWN
  4. METHOTREXATE. [Concomitant]
     Active Substance: METHOTREXATE
     Dosage: UNK, UNKNOWN
     Route: 058
  5. ATORVASTATINE [ATORVASTATIN] [Concomitant]
     Active Substance: ATORVASTATIN
     Dosage: UNK, UNKNOWN
  6. TAMSULOSINE [TAMSULOSIN] [Concomitant]
     Active Substance: TAMSULOSIN
     Dosage: 0.4 MG, UNKNOWN
  7. OLUMIANT [Suspect]
     Active Substance: BARICITINIB
     Indication: RHEUMATOID ARTHRITIS
     Dosage: 2 MG, DAILY
     Route: 065
     Dates: start: 20201214, end: 20210603
  8. ASCAL [ACETYLSALICYLATE CALCIUM] [Concomitant]
     Active Substance: ASPIRIN CALCIUM
     Dosage: UNK, UNKNOWN

REACTIONS (7)
  - Pleocytosis [Unknown]
  - Fatigue [Recovering/Resolving]
  - Language disorder [Recovered/Resolved]
  - Herpes zoster meningoencephalitis [Not Recovered/Not Resolved]
  - Gait disturbance [Recovering/Resolving]
  - Facial paresis [Unknown]
  - Peroneal nerve injury [Recovering/Resolving]

NARRATIVE: CASE EVENT DATE: 20210608
